FAERS Safety Report 7883834-0 (Version None)
Quarter: 2011Q4

REPORT INFORMATION
  Report Type: 
  Country: None (occurrence: None)
  Receive Date: 20111102
  Receipt Date: 20111019
  Transmission Date: 20120403
  Serious: Yes (Hospitalization, Other)
  Sender: FDA-Public Use
  Company Number: US-ELI_LILLY_AND_COMPANY-US201101003776

PATIENT
  Sex: Female
  Weight: 83.9 kg

DRUGS (14)
  1. ASPIRIN [Concomitant]
  2. MULTI-VITAMIN [Concomitant]
  3. GABAPENIN [Concomitant]
  4. FORTEO [Suspect]
     Dosage: 20 UG, AS NEEDED
     Dates: start: 20110211
  5. TRAMADOL HCL [Concomitant]
  6. LEFLUNOMIDE [Concomitant]
  7. VITAMIN D [Concomitant]
  8. CRANBERRY [Concomitant]
  9. FORTEO [Suspect]
     Indication: OSTEOPOROSIS
     Dosage: 20 UG, DAILY (1/D)
     Dates: start: 20100901, end: 20110103
  10. PREDNISONE [Concomitant]
  11. CALCIUM [Concomitant]
  12. HUMIRA [Concomitant]
  13. PRILOSEC [Concomitant]
  14. INDOMETHACIN [Concomitant]

REACTIONS (2)
  - IMPAIRED HEALING [None]
  - FEMUR FRACTURE [None]
